FAERS Safety Report 4582936-4 (Version None)
Quarter: 2005Q1

REPORT INFORMATION
  Report Type: 
  Country: None (occurrence: None)
  Receive Date: 20050215
  Receipt Date: 20040525
  Transmission Date: 20050727
  Serious: Yes (Hospitalization, Other)
  Sender: FDA-Public Use
  Company Number: PHNU2004DE01926

PATIENT
  Age: 50 Year
  Sex: Male

DRUGS (5)
  1. PLAVIX [Suspect]
  2. FERRUM ^GREEN CROSS^ [Concomitant]
  3. LISINOPRIL [Concomitant]
  4. ISDN ^ALIUD PHARMA^ [Concomitant]
  5. SANDIMMUNE [Suspect]
     Indication: APLASTIC ANAEMIA
     Dosage: UNK, UNK
     Route: 048
     Dates: start: 20011201

REACTIONS (6)
  - ANGINA PECTORIS [None]
  - CORONARY ARTERIAL STENT INSERTION [None]
  - CORONARY ARTERY OCCLUSION [None]
  - DIABETES MELLITUS NON-INSULIN-DEPENDENT [None]
  - SERUM FERRITIN INCREASED [None]
  - THROMBOCYTOPENIA [None]
